FAERS Safety Report 5854440-4 (Version None)
Quarter: 2008Q3

REPORT INFORMATION
  Report Type: 
  Country: None (occurrence: None)
  Receive Date: 20080822
  Receipt Date: 20080811
  Transmission Date: 20090109
  Serious: Yes (Other)
  Sender: FDA-Public Use
  Company Number: US-PFIZER INC-2008002388

PATIENT
  Sex: Female

DRUGS (1)
  1. DILANTIN [Suspect]
     Indication: PROPHYLAXIS

REACTIONS (4)
  - ANTICONVULSANT DRUG LEVEL DECREASED [None]
  - HYPERSENSITIVITY [None]
  - PRURITUS [None]
  - THYROIDECTOMY [None]
